FAERS Safety Report 9895606 (Version 1)
Quarter: 2014Q1

REPORT INFORMATION
  Report Type: Spontaneous
  Country: US (occurrence: US)
  Receive Date: 20140213
  Receipt Date: 20140213
  Transmission Date: 20141002
  Serious: No
  Sender: FDA-Public Use
  Company Number: US-BRISTOL-MYERS SQUIBB COMPANY-17384058

PATIENT
  Age: 57 Year
  Sex: Female
  Weight: 61.22 kg

DRUGS (2)
  1. ABATACEPT SUBQ INJECTION 125MG/ML [Suspect]
     Indication: RHEUMATOID ARTHRITIS
     Dosage: LAST INJECTION WAS ON 12FEB2013
     Route: 058
  2. NEXIUM [Concomitant]

REACTIONS (3)
  - Injection site pain [Unknown]
  - Contusion [Unknown]
  - Product quality issue [Unknown]
